FAERS Safety Report 5011843-8 (Version None)
Quarter: 2006Q2

REPORT INFORMATION
  Report Type: 
  Country: None (occurrence: None)
  Receive Date: 20060524
  Receipt Date: 20060524
  Transmission Date: 20061013
  Serious: Yes (Hospitalization)
  Sender: FDA-Public Use
  Company Number: None

PATIENT
  Age: 60 Year
  Sex: Male
  Weight: 65.9 kg

DRUGS (14)
  1. CLOPIDOGREL [Suspect]
     Indication: PROPHYLAXIS
     Dosage: 75MG DAILY PO
     Route: 048
     Dates: start: 20050901, end: 20060322
  2. CLOPIDOGREL [Suspect]
     Indication: STENT PLACEMENT
     Dosage: 75MG DAILY PO
     Route: 048
     Dates: start: 20050901, end: 20060322
  3. HYDROXYZINE PAMOATE [Concomitant]
  4. SIMVASTATIN [Concomitant]
  5. ATENOLOL [Concomitant]
  6. FLUOCINONIDE [Concomitant]
  7. FELODIPINE [Concomitant]
  8. NITROGYLYCERIN [Concomitant]
  9. ATROPINE SULFATE [Concomitant]
  10. BRIMONIDINE TARTRATE [Concomitant]
  11. TIMOLOL MALEATE [Concomitant]
  12. LISINOPRIL [Concomitant]
  13. FUROSEMIDE [Concomitant]
  14. GLIPIZIDE [Concomitant]

REACTIONS (3)
  - DIVERTICULUM [None]
  - HAEMATOCRIT DECREASED [None]
  - RECTAL HAEMORRHAGE [None]
